FAERS Safety Report 6176061-9 (Version None)
Quarter: 2009Q2

REPORT INFORMATION
  Report Type: 
  Country: None (occurrence: None)
  Receive Date: 20090501
  Receipt Date: 20090423
  Transmission Date: 20091009
  Serious: Yes (Other)
  Sender: FDA-Public Use
  Company Number: JP-PFIZER INC-2009173561

PATIENT

DRUGS (5)
  1. LIPITOR [Suspect]
     Indication: HYPERLIPIDAEMIA
     Dosage: DAILY
     Dates: start: 20070612, end: 20090101
  2. AMLODIPINE [Concomitant]
     Indication: HYPERTENSION
     Dosage: 5 MG, UNK
     Route: 048
     Dates: start: 20050524, end: 20090101
  3. MICARDIS [Concomitant]
     Indication: HYPERTENSION
     Dosage: 40 MG, UNK
     Route: 048
     Dates: end: 20090101
  4. IMIDAPRIL HYDROCHLORIDE [Concomitant]
  5. MAGNESIUM OXIDE [Concomitant]
     Dosage: UNK
     Route: 048
     Dates: start: 20050509, end: 20080925

REACTIONS (4)
  - ASTHENIA [None]
  - EPILEPSY [None]
  - GLOBAL AMNESIA [None]
  - NERVOUSNESS [None]
